FAERS Safety Report 18300879 (Version 2)
Quarter: 2022Q2

REPORT INFORMATION
  Report Type: Other
  Country: CA (occurrence: CA)
  Receive Date: 20200923
  Receipt Date: 20220509
  Transmission Date: 20220721
  Serious: Yes (Other)
  Sender: FDA-Public Use
  Company Number: None

PATIENT
  Age: 77 Year
  Sex: Female

DRUGS (1)
  1. LEVETIRACETAM [Suspect]
     Active Substance: LEVETIRACETAM
     Indication: Product used for unknown indication
     Route: 065

REACTIONS (1)
  - Seizure [Unknown]
